FAERS Safety Report 9380437 (Version 1)
Quarter: 2013Q3

REPORT INFORMATION
  Report Type: Report from Study
  Country: BR (occurrence: BR)
  Receive Date: 20130702
  Receipt Date: 20130702
  Transmission Date: 20140515
  Serious: Yes (Hospitalization, Other)
  Sender: FDA-Public Use
  Company Number: BR-ABBOTT-13P-020-1111058-00

PATIENT
  Age: 67 Year
  Sex: Female
  Weight: 67 kg

DRUGS (4)
  1. HUMIRA [Suspect]
     Indication: RHEUMATOID ARTHRITIS
     Route: 058
     Dates: start: 20120723
  2. MODURETIC [Concomitant]
  3. METHOTREXATE [Concomitant]
     Indication: HYPERTENSION
     Route: 048
  4. METHOTREXATE [Concomitant]
     Indication: RHEUMATOID ARTHRITIS
     Route: 048

REACTIONS (6)
  - Pneumonia [Recovering/Resolving]
  - Prosthesis user [Unknown]
  - Pain [Unknown]
  - Bursitis [Unknown]
  - Joint range of motion decreased [Not Recovered/Not Resolved]
  - Gait disturbance [Unknown]
